FAERS Safety Report 6628942-7 (Version None)
Quarter: 2010Q1

REPORT INFORMATION
  Report Type: 
  Country: None (occurrence: None)
  Receive Date: 20100311
  Receipt Date: 20090806
  Transmission Date: 20100710
  Serious: No
  Sender: FDA-Public Use
  Company Number: US-BIOGENIDEC-2009BI024605

PATIENT
  Age: 45 Year
  Sex: Female

DRUGS (4)
  1. AVONEX [Suspect]
     Indication: MULTIPLE SCLEROSIS
     Route: 030
     Dates: start: 20090618, end: 20090618
  2. AVONEX [Suspect]
     Route: 030
     Dates: start: 20090624, end: 20090624
  3. AVONEX [Suspect]
     Route: 030
     Dates: start: 20090701, end: 20090701
  4. AVONEX [Suspect]
     Route: 030
     Dates: start: 20090708

REACTIONS (2)
  - INFLUENZA LIKE ILLNESS [None]
  - MEMORY IMPAIRMENT [None]
